FAERS Safety Report 8583447-1 (Version None)
Quarter: 2012Q3

REPORT INFORMATION
  Report Type: 
  Country: None (occurrence: None)
  Receive Date: 20120809
  Receipt Date: 20120803
  Transmission Date: 20120928
  Serious: Yes (Other)
  Sender: FDA-Public Use
  Company Number: US-BAXTER-2012BAX013662

PATIENT
  Sex: Female

DRUGS (7)
  1. XANAX [Concomitant]
  2. NORCO [Concomitant]
  3. ZANAFLEX [Concomitant]
  4. NORTRIPTYLINE HCL [Concomitant]
  5. GAMMAGARD LIQUID [Suspect]
     Dates: start: 20120301
  6. PROMETHAZINE [Concomitant]
  7. MOBIC [Concomitant]

REACTIONS (4)
  - METABOLIC DISORDER [None]
  - INFLUENZA LIKE ILLNESS [None]
  - RASH [None]
  - PAPULE [None]
